FAERS Safety Report 5341707-1 (Version None)
Quarter: 2007Q2

REPORT INFORMATION
  Report Type: 
  Country: None (occurrence: None)
  Receive Date: 20070529
  Receipt Date: 20070529
  Transmission Date: 20071010
  Serious: Yes (Hospitalization, Other)
  Sender: FDA-Public Use
  Company Number: None

PATIENT
  Age: 87 Year
  Sex: Male

DRUGS (3)
  1. ZYDIS 2.5MG [Suspect]
     Dosage: 2.5MG
     Dates: start: 20061130, end: 20061130
  2. ZYDIS 5MG [Suspect]
     Dosage: 5MG
     Dates: start: 20061129, end: 20061129
  3. HALDOL [Concomitant]

REACTIONS (1)
  - LOSS OF CONSCIOUSNESS [None]
